FAERS Safety Report 13373078 (Version 1)
Quarter: 2017Q1

REPORT INFORMATION
  Report Type: Spontaneous
  Country: GR (occurrence: GR)
  Receive Date: 20170327
  Receipt Date: 20170327
  Transmission Date: 20170429
  Serious: Yes (Death, Hospitalization, Other)
  Sender: FDA-Public Use
  Company Number: GR-VIIV HEALTHCARE LIMITED-GR2017GSK040063

PATIENT
  Age: 24 Year
  Sex: Male

DRUGS (2)
  1. TRUVADA [Suspect]
     Active Substance: EMTRICITABINE\TENOFOVIR DISOPROXIL FUMARATE
     Indication: HIV INFECTION
     Dosage: UNK
     Dates: start: 201610
  2. TIVICAY [Suspect]
     Active Substance: DOLUTEGRAVIR SODIUM
     Indication: HIV INFECTION
     Dosage: UNK
     Dates: start: 201610

REACTIONS (5)
  - Gait disturbance [Unknown]
  - Tuberculous abscess central nervous system [Fatal]
  - Headache [Unknown]
  - Pyrexia [Unknown]
  - Skin lesion [Unknown]
